FAERS Safety Report 9534956 (Version 5)
Quarter: 2014Q2

REPORT INFORMATION
  Report Type: Spontaneous
  Country: CA (occurrence: CA)
  Receive Date: 20130918
  Receipt Date: 20140429
  Transmission Date: 20141212
  Serious: Yes (Other)
  Sender: FDA-Public Use
  Company Number: CA-GLAXOSMITHKLINE-A0983645A

PATIENT
  Age: 63 Year
  Sex: Female
  Weight: 59 kg

DRUGS (1)
  1. BENLYSTA [Suspect]
     Indication: SYSTEMIC LUPUS ERYTHEMATOSUS
     Dosage: 590MG SEE DOSAGE TEXT
     Route: 042
     Dates: start: 20120703

REACTIONS (8)
  - Urticaria [Recovered/Resolved]
  - Carpal tunnel syndrome [Unknown]
  - Rash [Not Recovered/Not Resolved]
  - Cutaneous lupus erythematosus [Not Recovered/Not Resolved]
  - Pulmonary mass [Not Recovered/Not Resolved]
  - Drug ineffective [Unknown]
  - Malaise [Unknown]
  - Pruritus [Unknown]
